FAERS Safety Report 10655634 (Version 4)
Quarter: 2015Q2

REPORT INFORMATION
  Report Type: Report from Study
  Country: JP (occurrence: JP)
  Receive Date: 20141216
  Receipt Date: 20150401
  Transmission Date: 20150821
  Serious: Yes (Hospitalization, Other)
  Sender: FDA-Public Use
  Company Number: JP-GSKJP-JP2014JPN032887AA

PATIENT
  Age: 49 Year
  Sex: Female
  Weight: 61 kg

DRUGS (5)
  1. ALLELOCK [Concomitant]
     Active Substance: OLOPATADINE HYDROCHLORIDE
     Dosage: 5 MG, BID
     Dates: start: 20130909, end: 20130923
  2. AVASTIN [Suspect]
     Active Substance: BEVACIZUMAB
     Indication: GLIOMA
     Dosage: 630 MG, QD
     Route: 041
     Dates: start: 20130826
  3. TEMODAL [Concomitant]
     Active Substance: TEMOZOLOMIDE
     Indication: GLIOMA
     Dosage: 340 MG, QD
     Dates: start: 20130624
  4. PHENOBAL [Concomitant]
     Active Substance: PHENOBARBITAL
     Indication: PROPHYLAXIS
     Dosage: 0.5 G, BID
     Dates: start: 20131129, end: 20140115
  5. ATOVAQUONE. [Suspect]
     Active Substance: ATOVAQUONE
     Indication: ANTIFUNGAL PROPHYLAXIS
     Dosage: 1500 MG, QD
     Route: 048
     Dates: start: 20130909, end: 20140114

REACTIONS (6)
  - Pulmonary embolism [Recovering/Resolving]
  - Pleural effusion [Unknown]
  - Retroperitoneal abscess [Not Recovered/Not Resolved]
  - Pancytopenia [Recovering/Resolving]
  - Large intestine perforation [Not Recovered/Not Resolved]
  - Abdominal abscess [Recovering/Resolving]

NARRATIVE: CASE EVENT DATE: 20131031
